FAERS Safety Report 4507354-6 (Version None)
Quarter: 2004Q4

REPORT INFORMATION
  Report Type: 
  Country: None (occurrence: None)
  Receive Date: 20041118
  Receipt Date: 20041102
  Transmission Date: 20050328
  Serious: Yes (Hospitalization)
  Sender: FDA-Public Use
  Company Number: 203666

PATIENT
  Age: 35 Year
  Sex: Female

DRUGS (2)
  1. AVONEX [Suspect]
     Indication: MULTIPLE SCLEROSIS
     Dosage: 30 MCG QW IM
     Route: 030
     Dates: start: 20020601
  2. AVONEX [Suspect]
     Indication: MULTIPLE SCLEROSIS
     Dosage: 30 MCG QW IM
     Route: 030
     Dates: start: 20040515

REACTIONS (12)
  - ADENOMYOSIS [None]
  - AMENORRHOEA [None]
  - BENIGN UTERINE NEOPLASM [None]
  - BLOOD THYROID STIMULATING HORMONE INCREASED [None]
  - CYSTOURETHROCELE [None]
  - HELICOBACTER INFECTION [None]
  - HERNIA [None]
  - LEIOMYOMA [None]
  - MENORRHAGIA [None]
  - POLYMENORRHOEA [None]
  - STRESS INCONTINENCE [None]
  - URINARY INCONTINENCE [None]
